FAERS Safety Report 5572796-7 (Version None)
Quarter: 2007Q4

REPORT INFORMATION
  Report Type: 
  Country: None (occurrence: None)
  Receive Date: 20071223
  Receipt Date: 20071217
  Transmission Date: 20080405
  Serious: Yes (Other)
  Sender: FDA-Public Use
  Company Number: PHBS2007JP15090

PATIENT
  Age: 75 Year
  Sex: Male

DRUGS (4)
  1. ZOMETA [Suspect]
     Indication: BONE LESION
     Dosage: 4 MG, QD
     Route: 042
     Dates: start: 20060801, end: 20070701
  2. GASTER [Concomitant]
     Dosage: 40 MG/DAY
     Route: 048
  3. CONIEL [Concomitant]
     Dosage: 6 MG/DAY
     Route: 048
  4. ROHYPNOL [Concomitant]
     Dosage: 1 MG/DAY

REACTIONS (3)
  - MOUTH HAEMORRHAGE [None]
  - OSTEOMYELITIS [None]
  - OSTEONECROSIS [None]
